FAERS Safety Report 4300641-6 (Version None)
Quarter: 2004Q1

REPORT INFORMATION
  Report Type: 
  Country: None (occurrence: None)
  Receive Date: 20040217
  Receipt Date: 20040203
  Transmission Date: 20041129
  Serious: Yes (Hospitalization)
  Sender: FDA-Public Use
  Company Number: 2004007552

PATIENT
  Age: 54 Year
  Sex: Male

DRUGS (4)
  1. NORVASC [Suspect]
     Indication: HYPERTENSION
     Dosage: 5 MG DAILY, ORAL
     Route: 048
     Dates: start: 20030705, end: 20040203
  2. TELMISARTAN (TELMISARTAN) [Concomitant]
  3. GLIMEPIRIDE [Concomitant]
  4. DISTIGMINE BROMIDE (DISTIGMINE BROMIDE) [Concomitant]

REACTIONS (3)
  - CEREBRAL HAEMORRHAGE [None]
  - GYNAECOMASTIA [None]
  - LUNG INFECTION [None]
